FAERS Safety Report 4647340-9 (Version None)
Quarter: 2005Q2

REPORT INFORMATION
  Report Type: 
  Country: None (occurrence: None)
  Receive Date: 20050426
  Receipt Date: 20050414
  Transmission Date: 20051028
  Serious: Yes (Hospitalization, Disabling)
  Sender: FDA-Public Use
  Company Number: 2005SE02188

PATIENT
  Age: 47 Year
  Sex: Female

DRUGS (3)
  1. BLOPRESS [Suspect]
     Indication: HYPERTENSION
     Dosage: 8 MG QD PO
     Route: 048
     Dates: start: 20040813, end: 20040909
  2. BLOPRESS [Suspect]
     Indication: HYPERTENSION
     Dosage: 12 MG QD PO
     Route: 048
     Dates: start: 20040910, end: 20050404
  3. LIPITOR [Concomitant]

REACTIONS (2)
  - CEREBRAL INFARCTION [None]
  - DRUG INEFFECTIVE [None]
